FAERS Safety Report 9414771 (Version 2)
Quarter: 2013Q3

REPORT INFORMATION
  Report Type: Spontaneous
  Country: US (occurrence: US)
  Receive Date: 20130723
  Receipt Date: 20130827
  Transmission Date: 20140515
  Serious: Yes (Congenital Anomaly, Other)
  Sender: FDA-Public Use
  Company Number: US-PFIZER INC-2013211782

PATIENT
  Sex: Female

DRUGS (12)
  1. ZOLOFT [Suspect]
     Dosage: UNK
     Route: 064
     Dates: start: 2004, end: 2010
  2. SERTRALINE HCL [Suspect]
     Dosage: UNK
     Route: 064
     Dates: start: 2004, end: 2010
  3. FERROUS SULFATE [Concomitant]
     Dosage: UNK
     Route: 064
  4. PYRIDOXINE [Concomitant]
     Dosage: UNK
     Route: 064
  5. TYLENOL NO. 3 [Concomitant]
     Dosage: UNK
     Route: 064
  6. PHENERGAN [Concomitant]
     Dosage: UNK
     Route: 064
  7. PRENATAL VITAMINS [Concomitant]
     Dosage: UNK
     Route: 064
  8. MICROBID [Concomitant]
     Dosage: UNK
     Route: 064
  9. AUGMENTIN [Concomitant]
     Dosage: UNK
     Route: 064
  10. CLARITIN [Concomitant]
     Dosage: UNK
     Route: 064
  11. PROVENTIL [Concomitant]
     Dosage: UNK
     Route: 064
  12. NAPROSYN [Concomitant]
     Dosage: UNK
     Route: 064

REACTIONS (5)
  - Maternal exposure during pregnancy [Unknown]
  - Ventricular septal defect [Unknown]
  - Congenital heart valve disorder [Unknown]
  - Atrial septal defect [Unknown]
  - Premature baby [Unknown]
